FAERS Safety Report 5013522-X (Version None)
Quarter: 2006Q2

REPORT INFORMATION
  Report Type: 
  Country: None (occurrence: None)
  Receive Date: 20060526
  Receipt Date: 20060526
  Transmission Date: 20061013
  Serious: Yes (Hospitalization)
  Sender: FDA-Public Use
  Company Number: None

PATIENT
  Age: 54 Year
  Sex: Male

DRUGS (2)
  1. INAPSINE [Suspect]
     Dosage: SOLUTION
  2. . [Concomitant]

REACTIONS (1)
  - INTERCEPTED DRUG ADMINISTRATION ERROR [None]
